FAERS Safety Report 18244779 (Version 2)
Quarter: 2021Q1

REPORT INFORMATION
  Report Type: Spontaneous
  Country: US (occurrence: US)
  Receive Date: 20200909
  Receipt Date: 20210310
  Transmission Date: 20210419
  Serious: Yes (Other)
  Sender: FDA-Public Use
  Company Number: US-SA-2020SA243723

PATIENT
  Age: 82 Year
  Sex: Male

DRUGS (1)
  1. ZANTAC [Suspect]
     Active Substance: RANITIDINE HYDROCHLORIDE
     Indication: GASTRIC ULCER
     Dosage: 150 MG, QD
     Dates: start: 200204, end: 201806

REACTIONS (2)
  - Gastric cancer stage IV [Not Recovered/Not Resolved]
  - Colorectal cancer [Unknown]

NARRATIVE: CASE EVENT DATE: 20180101
